FAERS Safety Report 18965328 (Version 1)
Quarter: 2021Q1

REPORT INFORMATION
  Report Type: Report from Study
  Country: FR (occurrence: FR)
  Receive Date: 20210303
  Receipt Date: 20210303
  Transmission Date: 20210420
  Serious: Yes (Hospitalization, Other)
  Sender: FDA-Public Use
  Company Number: FR-GILEAD-2020-0491878

PATIENT
  Sex: Male

DRUGS (10)
  1. INEXIUM [ESOMEPRAZOLE MAGNESIUM] [Concomitant]
     Active Substance: ESOMEPRAZOLE MAGNESIUM
  2. REMDESIVIR. [Suspect]
     Active Substance: REMDESIVIR
     Dosage: 100 MG
     Route: 042
     Dates: start: 20200422
  3. NORADREC [Concomitant]
  4. REMDESIVIR. [Suspect]
     Active Substance: REMDESIVIR
     Indication: COVID-19
     Dosage: 200 MG
     Route: 042
     Dates: start: 20200412, end: 20200412
  5. REMDESIVIR. [Suspect]
     Active Substance: REMDESIVIR
     Dosage: 100 MG
     Route: 042
     Dates: start: 20200413, end: 20200420
  6. HYPNOVEL [MIDAZOLAM HYDROCHLORIDE] [Concomitant]
     Active Substance: MIDAZOLAM HYDROCHLORIDE
  7. CLAFORAN [Concomitant]
     Active Substance: CEFOTAXIME SODIUM
     Dosage: 6000 MG
     Route: 042
     Dates: start: 20200410
  8. ROVAMYCINE [SPIRAMYCIN ADEPATE] [Concomitant]
     Active Substance: SPIRAMYCIN ADIPATE
     Dosage: 1.5M UI
     Route: 042
     Dates: start: 20200410
  9. SUFENTA [Concomitant]
     Active Substance: SUFENTANIL CITRATE
  10. CORDARONE [Concomitant]
     Active Substance: AMIODARONE HYDROCHLORIDE

REACTIONS (2)
  - Atrial fibrillation [Recovered/Resolved]
  - Atrial fibrillation [Recovered/Resolved]

NARRATIVE: CASE EVENT DATE: 20200416
